FAERS Safety Report 18143043 (Version 13)
Quarter: 2021Q2

REPORT INFORMATION
  Report Type: Report from Study
  Country: US (occurrence: US)
  Receive Date: 20200813
  Receipt Date: 20210409
  Transmission Date: 20210717
  Serious: Yes (Other)
  Sender: FDA-Public Use
  Company Number: NVSC2020US222972

PATIENT
  Age: 71 Year
  Sex: Male
  Weight: 107 kg

DRUGS (8)
  1. ENTRESTO [Suspect]
     Active Substance: SACUBITRIL\VALSARTAN
     Indication: CARDIAC FAILURE
     Dosage: 50 MG, BID (24/26 MG)
     Route: 048
     Dates: start: 20200730
  2. ENTRESTO [Suspect]
     Active Substance: SACUBITRIL\VALSARTAN
     Dosage: UNK, BID
     Route: 048
     Dates: start: 20201007
  3. ENTRESTO [Suspect]
     Active Substance: SACUBITRIL\VALSARTAN
     Dosage: UNK
     Route: 065
     Dates: start: 202012
  4. ENTRESTO [Suspect]
     Active Substance: SACUBITRIL\VALSARTAN
     Indication: CARDIAC FAILURE CONGESTIVE
     Dosage: UNK
     Route: 048
     Dates: start: 202007
  5. CARVEDILOL. [Concomitant]
     Active Substance: CARVEDILOL
     Indication: PRODUCT USED FOR UNKNOWN INDICATION
     Dosage: UNK
     Route: 048
  6. ENTRESTO [Suspect]
     Active Substance: SACUBITRIL\VALSARTAN
     Indication: EJECTION FRACTION DECREASED
     Dosage: 50 MG, BID (24/26 MG)
     Route: 065
     Dates: start: 202006
  7. ENTRESTO [Suspect]
     Active Substance: SACUBITRIL\VALSARTAN
     Dosage: UNK
     Route: 065
     Dates: start: 202009, end: 202011
  8. ENTRESTO [Suspect]
     Active Substance: SACUBITRIL\VALSARTAN
     Dosage: 50 MG, BID
     Route: 048
     Dates: start: 20201010

REACTIONS (20)
  - Loss of consciousness [Unknown]
  - Heart rate decreased [Unknown]
  - Dyspnoea [Unknown]
  - Tooth abscess [Unknown]
  - Fall [Unknown]
  - Weight decreased [Unknown]
  - Feeling abnormal [Unknown]
  - Weight increased [Unknown]
  - Abscess [Unknown]
  - Toothache [Unknown]
  - Blood glucose increased [Unknown]
  - Flushing [Unknown]
  - Dermatitis contact [Unknown]
  - Rash [Unknown]
  - Hypotension [Recovered/Resolved]
  - Syncope [Unknown]
  - Herpes zoster [Recovering/Resolving]
  - Dizziness exertional [Unknown]
  - Dizziness postural [Unknown]
  - Oral pain [Unknown]

NARRATIVE: CASE EVENT DATE: 20200819
